FAERS Safety Report 13905803 (Version 2)
Quarter: 2017Q4

REPORT INFORMATION
  Report Type: Spontaneous
  Country: US (occurrence: US)
  Receive Date: 20170825
  Receipt Date: 20171003
  Transmission Date: 20180320
  Serious: No
  Sender: FDA-Public Use
  Company Number: US-GLAXOSMITHKLINE-US2017GSK129284

PATIENT
  Age: 60 Year
  Sex: Female

DRUGS (1)
  1. BECONASE AQ [Suspect]
     Active Substance: BECLOMETHASONE DIPROPIONATE MONOHYDRATE
     Indication: MULTIPLE ALLERGIES
     Dosage: UNK, U
     Dates: end: 20170906

REACTIONS (9)
  - Head discomfort [Unknown]
  - Pelvic pain [Unknown]
  - Chest discomfort [Unknown]
  - Vision blurred [Unknown]
  - Nervous system disorder [Unknown]
  - Lung disorder [Unknown]
  - Headache [Unknown]
  - Musculoskeletal chest pain [Unknown]
  - Pain in extremity [Unknown]

NARRATIVE: CASE EVENT DATE: 20170812
